FAERS Safety Report 5014352-5 (Version None)
Quarter: 2006Q2

REPORT INFORMATION
  Report Type: 
  Country: None (occurrence: None)
  Receive Date: 20060411
  Receipt Date: 20050801
  Transmission Date: 20061013
  Serious: No
  Sender: FDA-Public Use
  Company Number: A03200502328

PATIENT
  Age: 66 Year
  Sex: Male

DRUGS (1)
  1. UROXATRAL [Suspect]
     Dosage: 10 MG OD - ORAL
     Route: 048
     Dates: start: 20050801, end: 20050101

REACTIONS (1)
  - MEDICATION RESIDUE [None]
